FAERS Safety Report 16669915 (Version 1)
Quarter: 2019Q3

REPORT INFORMATION
  Report Type: Spontaneous
  Country: PL (occurrence: PL)
  Receive Date: 20190805
  Receipt Date: 20190805
  Transmission Date: 20191004
  Serious: Yes (Other)
  Sender: FDA-Public Use
  Company Number: PL-009507513-1907POL015503

PATIENT
  Sex: Male

DRUGS (1)
  1. PROSCAR [Suspect]
     Active Substance: FINASTERIDE

REACTIONS (4)
  - Gynaecomastia [Unknown]
  - Breast mass [Unknown]
  - Nipple disorder [Unknown]
  - Pruritus [Unknown]

NARRATIVE: CASE EVENT DATE: 201601
